FAERS Safety Report 8809936 (Version 2)
Quarter: 2012Q4

REPORT INFORMATION
  Report Type: 
  Country: AT (occurrence: AT)
  Receive Date: 20120926
  Receipt Date: 20121017
  Transmission Date: 20130627
  Serious: Yes (Death, Life-Threatening)
  Sender: FDA-Public Use
  Company Number: AT-009507513-1209AUT006423

PATIENT
  Age: 33 Year
  Sex: Male
  Weight: 68 kg

DRUGS (4)
  1. VICTRELIS [Suspect]
     Indication: HEPATITIS C
     Dosage: 1200 mg, qd
     Route: 048
     Dates: start: 20120514, end: 20120710
  2. COPEGUS [Suspect]
     Indication: HEPATITIS C
     Dosage: 1000 mg, qd
     Dates: start: 20120323, end: 20120606
  3. PEGASYS [Suspect]
     Indication: HEPATITIS C
     Dosage: 180 Microgram, qd
     Dates: start: 20120323, end: 20120710
  4. SUBSTITOL (ESTRADIOL) [Concomitant]
     Dosage: 600 mg, qd

REACTIONS (6)
  - Tuberculosis [Fatal]
  - Brain oedema [Fatal]
  - Anaemia [Recovered/Resolved]
  - Haemoglobin decreased [Recovered/Resolved]
  - Asphyxia [Fatal]
  - Fatigue [Unknown]
